FAERS Safety Report 5240680-4 (Version None)
Quarter: 2007Q1

REPORT INFORMATION
  Report Type: 
  Country: None (occurrence: None)
  Receive Date: 20061208
  Receipt Date: 20060403
  Transmission Date: 20070707
  Serious: Yes (Other)
  Sender: FDA-Public Use
  Company Number: 2006UW05784

PATIENT
  Age: 75 Year
  Sex: Male
  Weight: 70.306 kg

DRUGS (2)
  1. CRESTOR [Suspect]
     Indication: BLOOD CHOLESTEROL INCREASED
     Dosage: 10 MG PO
     Route: 048
  2. ASPIRIN [Concomitant]

REACTIONS (2)
  - FAECES DISCOLOURED [None]
  - ILL-DEFINED DISORDER [None]
